FAERS Safety Report 6010212-1 (Version None)
Quarter: 2008Q4

REPORT INFORMATION
  Report Type: 
  Country: None (occurrence: None)
  Receive Date: 20081218
  Receipt Date: 20080125
  Transmission Date: 20090506
  Serious: No
  Sender: FDA-Public Use
  Company Number: A0696613A

PATIENT
  Sex: Female

DRUGS (1)
  1. FLUTICASONE PROPIONATE [Suspect]
     Dosage: 4SPR SINGLE DOSE
     Route: 045
     Dates: start: 20071103, end: 20071103

REACTIONS (5)
  - AGEUSIA [None]
  - ANOSMIA [None]
  - COUGH [None]
  - EAR DISCOMFORT [None]
  - OROPHARYNGEAL PAIN [None]
